FAERS Safety Report 10086515 (Version 2)
Quarter: 2014Q2

REPORT INFORMATION
  Report Type: Spontaneous
  Country: US (occurrence: US)
  Receive Date: 20140418
  Receipt Date: 20140519
  Transmission Date: 20141212
  Serious: No
  Sender: FDA-Public Use
  Company Number: US-PFIZER INC-2014108687

PATIENT
  Age: 68 Year
  Sex: Female
  Weight: 77.1 kg

DRUGS (1)
  1. CELEBREX [Suspect]
     Indication: ARTHRITIS
     Dosage: 200 MG, 1X/DAY
     Route: 048
     Dates: start: 201404, end: 20140413

REACTIONS (3)
  - Influenza [Unknown]
  - Arthralgia [Unknown]
  - Migraine [Unknown]
